FAERS Safety Report 10330331 (Version 1)
Quarter: 2014Q3

REPORT INFORMATION
  Report Type: Spontaneous
  Country: GB (occurrence: GB)
  Receive Date: 20140722
  Receipt Date: 20140722
  Transmission Date: 20150326
  Serious: Yes (Other)
  Sender: FDA-Public Use
  Company Number: GB-ACCORD-024855

PATIENT
  Age: 73 Year
  Sex: Female
  Weight: 71 kg

DRUGS (2)
  1. CLOPIDOGREL [Suspect]
     Active Substance: CLOPIDOGREL BISULFATE
     Indication: CARDIOVASCULAR EVENT PROPHYLAXIS
     Route: 048
     Dates: start: 20140417, end: 20140516
  2. ATENOLOL/ATENOLOL HYDROCHLORIDE [Concomitant]

REACTIONS (2)
  - Dry mouth [Recovering/Resolving]
  - Drug-induced liver injury [Recovering/Resolving]
